FAERS Safety Report 16916669 (Version 1)
Quarter: 2019Q4

REPORT INFORMATION
  Report Type: Other
  Country: GB (occurrence: GB)
  Receive Date: 20191014
  Receipt Date: 20191014
  Transmission Date: 20200122
  Serious: Yes (Disabling, Other)
  Sender: FDA-Public Use
  Company Number: GB-GLENMARK PHARMACEUTICALS-2019GMK043557

PATIENT

DRUGS (12)
  1. OTOMIZE [Concomitant]
     Active Substance: DEXAMETHASONE\NEOMYCIN SULFATE
     Indication: PRODUCT USED FOR UNKNOWN INDICATION
     Dosage: UNK, TID (USE THREE TIMES A DAY TO BOTH EARS )
     Route: 065
     Dates: start: 20190723, end: 20190730
  2. NITROFURANTOIN. [Concomitant]
     Active Substance: NITROFURANTOIN
     Indication: PRODUCT USED FOR UNKNOWN INDICATION
     Dosage: UNK, BID (TWICE DAILY)
     Route: 065
     Dates: start: 20190625, end: 20190628
  3. PREDNISOLONE. [Concomitant]
     Active Substance: PREDNISOLONE
     Indication: PRODUCT USED FOR UNKNOWN INDICATION
     Dosage: 6 DF, OD
     Route: 065
     Dates: start: 20190806, end: 20190811
  4. NYSTAN [Concomitant]
     Active Substance: NYSTATIN
     Indication: PRODUCT USED FOR UNKNOWN INDICATION
     Dosage: 4 ML, OD
     Route: 065
     Dates: start: 20190723, end: 20190730
  5. LEVOFLOXACIN. [Concomitant]
     Active Substance: LEVOFLOXACIN
     Indication: PRODUCT USED FOR UNKNOWN INDICATION
     Dosage: 1 DF, OD (FOR 10 DAYS IN EVENT OF EXACERBATION OF CHEST)
     Route: 065
     Dates: start: 20190905, end: 20190906
  6. OMEPRAZOLE. [Concomitant]
     Active Substance: OMEPRAZOLE
     Indication: PRODUCT USED FOR UNKNOWN INDICATION
     Dosage: 1 DF, OD
     Route: 065
     Dates: start: 20190131
  7. GABAPENTIN. [Suspect]
     Active Substance: GABAPENTIN
     Indication: PRODUCT USED FOR UNKNOWN INDICATION
     Dosage: 300 MG, TID (TAKE ONE DAILY FOR 3 DAYS THEN FOLLOWED BY TWICE A DAY)
     Route: 065
     Dates: start: 20190903
  8. ATORVASTATIN [Concomitant]
     Active Substance: ATORVASTATIN
     Dosage: 1 DF, OD
     Route: 065
     Dates: start: 20190131
  9. AZITHROMYCIN ANHYDROUS. [Concomitant]
     Active Substance: AZITHROMYCIN ANHYDROUS
     Indication: PRODUCT USED FOR UNKNOWN INDICATION
     Dosage: 3 DF, QW (EVERY WEEK, MONDAY, WEDNESDAY, FRIDAY OVER WINTER MONTHS)
     Route: 065
     Dates: start: 20190131
  10. COCODAMOL [Concomitant]
     Active Substance: ACETAMINOPHEN\CODEINE PHOSPHATE
     Indication: PRODUCT USED FOR UNKNOWN INDICATION
     Dosage: UNK (TAKE ONE TO TWO FOUR TIMES PER DAY )
     Route: 065
     Dates: start: 20190916
  11. INCRUSE ELLIPTA [Concomitant]
     Active Substance: UMECLIDINIUM BROMIDE
     Indication: PRODUCT USED FOR UNKNOWN INDICATION
     Dosage: 1 DF, OD (IN THE MORNING)
     Route: 055
     Dates: start: 20190131, end: 20190910
  12. SALAMOL                            /00139501/ [Concomitant]
     Indication: PRODUCT USED FOR UNKNOWN INDICATION
     Dosage: 2 DF, PRN (AS NECESSARY)
     Route: 055
     Dates: start: 20190131

REACTIONS (3)
  - Feeling cold [Unknown]
  - Hallucination [Recovered/Resolved]
  - Diarrhoea [Unknown]
